FAERS Safety Report 9101904 (Version 1)
Quarter: 2013Q1

REPORT INFORMATION
  Report Type: Report from Study
  Country: DE (occurrence: DE)
  Receive Date: 20130218
  Receipt Date: 20130218
  Transmission Date: 20140127
  Serious: Yes (Hospitalization)
  Sender: FDA-Public Use
  Company Number: DE-ELI_LILLY_AND_COMPANY-DE200705000595

PATIENT
  Age: 51 Year
  Sex: Female
  Weight: 63 kg

DRUGS (4)
  1. GEMCITABINE HYDROCHLORIDE [Suspect]
     Indication: BREAST CANCER
     Dosage: 1600 MG, UNKNOWN
     Route: 042
     Dates: start: 20070319
  2. DOCETAXEL [Suspect]
     Indication: BREAST CANCER
     Dosage: UNK UNK, UNKNOWN
     Route: 042
     Dates: start: 20070319
  3. ONDANSETRON [Concomitant]
     Indication: ANTIEMETIC SUPPORTIVE CARE
     Dosage: 8 MG, UNK
     Route: 042
     Dates: start: 20070417, end: 20070417
  4. RULID [Concomitant]
     Indication: PYREXIA
     Dosage: 300 MG, UNK
     Route: 048
     Dates: start: 20070417, end: 20070425

REACTIONS (1)
  - Infection [Recovered/Resolved]
